FAERS Safety Report 9457791 (Version 5)
Quarter: 2013Q4

REPORT INFORMATION
  Report Type: Spontaneous
  Country: DE (occurrence: DE)
  Receive Date: 20130814
  Receipt Date: 20131127
  Transmission Date: 20140711
  Serious: Yes (Other)
  Sender: FDA-Public Use
  Company Number: PHHY2013DE086107

PATIENT
  Sex: Female
  Weight: 80 kg

DRUGS (2)
  1. GILENYA [Suspect]
     Indication: MULTIPLE SCLEROSIS
     Dosage: 0.5 MG, QD
     Route: 048
     Dates: start: 201304
  2. XARELTO [Concomitant]

REACTIONS (2)
  - Polyp [Recovered/Resolved]
  - Vaginal haemorrhage [Recovered/Resolved]
